FAERS Safety Report 17245281 (Version 3)
Quarter: 2020Q1

REPORT INFORMATION
  Report Type: Report from Study
  Country: JP (occurrence: JP)
  Receive Date: 20200108
  Receipt Date: 20200227
  Transmission Date: 20200409
  Serious: Yes (Hospitalization, Other)
  Sender: FDA-Public Use
  Company Number: JP-ASTELLAS-2019JP005100

PATIENT
  Age: 48 Year
  Sex: Female
  Weight: 52 kg

DRUGS (11)
  1. PROGRAF [Concomitant]
     Active Substance: TACROLIMUS
     Indication: RASH
     Dosage: 2.4 MG/DAY, UNKNOWN FREQ.
     Route: 048
     Dates: start: 20190320
  2. PREDONINE [PREDNISOLONE ACETATE] [Concomitant]
     Active Substance: PREDNISOLONE ACETATE
     Indication: TUMOUR ASSOCIATED FEVER
     Dosage: 7 MG/DAY, UNKNOWN FREQ.
     Route: 042
  3. PROGRAF [Concomitant]
     Active Substance: TACROLIMUS
     Indication: PROPHYLAXIS
     Dosage: 0.45 MG/DAY, UNKNOWN FREQ.
     Route: 041
  4. METOCLOPRAMIDE. [Concomitant]
     Active Substance: METOCLOPRAMIDE
     Indication: PROPHYLAXIS OF NAUSEA AND VOMITING
     Dosage: UNK UNK, AT BEDTIME
     Route: 042
  5. NERISONA [Concomitant]
     Active Substance: DIFLUCORTOLONE VALERATE
     Indication: RASH
     Dosage: ADEQUATE DOSE, UNKNOWN FREQ.
     Route: 061
     Dates: start: 20190328
  6. FOSCAVIR [Suspect]
     Active Substance: FOSCARNET SODIUM
     Indication: CYTOMEGALOVIRUS INFECTION
     Dosage: 4680 MG/DAY, UNKNOWN FREQ.
     Route: 065
  7. PREDNISOLONE. [Concomitant]
     Active Substance: PREDNISOLONE
     Indication: PYREXIA
     Dosage: 10 MG/DAY, UNKNOWN FREQ.
     Route: 048
     Dates: start: 20190423, end: 20190506
  8. ASP2215 [Suspect]
     Active Substance: GILTERITINIB
     Indication: ACUTE MYELOID LEUKAEMIA RECURRENT
     Route: 048
     Dates: start: 20190315, end: 20190812
  9. FIRSTCIN [Concomitant]
     Active Substance: CEFOZOPRAN HYDROCHLORIDE
     Indication: PYREXIA
     Dosage: 2 G/DAY, UNKNOWN FREQ.
     Route: 065
     Dates: start: 20190328, end: 20190401
  10. CALONAL [Concomitant]
     Active Substance: ACETAMINOPHEN
     Indication: PYREXIA
     Dosage: 1600 MG/DAY, UNKNOWN FREQ.
     Route: 048
     Dates: start: 20190329, end: 20190507
  11. PREDNISOLONE. [Concomitant]
     Active Substance: PREDNISOLONE
     Dosage: 8 MG/DAY, UNKNOWN FREQ.
     Route: 048
     Dates: start: 20190507

REACTIONS (8)
  - Pyrexia [Recovered/Resolved]
  - Neutrophil count decreased [Recovering/Resolving]
  - Platelet count decreased [Not Recovered/Not Resolved]
  - Haematemesis [Recovered/Resolved]
  - Vomiting [Recovered/Resolved]
  - Upper gastrointestinal haemorrhage [Recovering/Resolving]
  - Pyrexia [Unknown]
  - Rash [Recovering/Resolving]

NARRATIVE: CASE EVENT DATE: 20190316
